FAERS Safety Report 7006325-8 (Version None)
Quarter: 2010Q3

REPORT INFORMATION
  Report Type: 
  Country: None (occurrence: None)
  Receive Date: 20100921
  Receipt Date: 20100908
  Transmission Date: 20110219
  Serious: Yes (Hospitalization)
  Sender: FDA-Public Use
  Company Number: GB-WATSON-2010-12273

PATIENT
  Age: 11 Year
  Sex: Female

DRUGS (2)
  1. FENTANYL CITRATE [Suspect]
     Indication: LOCAL ANAESTHESIA
     Dosage: 2 MCG/ML AT 3-12 ML/HR
     Route: 008
  2. BUPIVACAINE HCL [Suspect]
     Indication: LOCAL ANAESTHESIA
     Dosage: 10 ML BOLUS, THEN CONTINUOUS AT 3-12 ML/HR
     Route: 008

REACTIONS (3)
  - HYPOAESTHESIA [None]
  - INCORRECT ROUTE OF DRUG ADMINISTRATION [None]
  - PARALYSIS [None]
